FAERS Safety Report 10067315 (Version 2)
Quarter: 2014Q2

REPORT INFORMATION
  Report Type: Spontaneous
  Country: US (occurrence: None)
  Receive Date: 20140407
  Receipt Date: 20140430
  Transmission Date: 20141212
  Serious: Yes (Other)
  Sender: FDA-Public Use
  Company Number: 2014P1002936

PATIENT
  Sex: Female

DRUGS (4)
  1. PLAQUENIL [Suspect]
  2. ADALIMUMAB [Suspect]
     Indication: ANKYLOSING SPONDYLITIS
     Dates: start: 2008
  3. PREDNISONE [Concomitant]
  4. FLUTICASONE [Concomitant]

REACTIONS (8)
  - Renal failure acute [None]
  - Limb discomfort [None]
  - Rash [None]
  - Unevaluable event [None]
  - Muscle enzyme increased [None]
  - Skin mass [None]
  - Erythema [None]
  - Fatigue [None]
